FAERS Safety Report 11825973 (Version 1)
Quarter: 2015Q4

REPORT INFORMATION
  Report Type: Report from Study
  Country: US (occurrence: US)
  Receive Date: 20151211
  Receipt Date: 20151211
  Transmission Date: 20160305
  Serious: Yes (Hospitalization)
  Sender: FDA-Public Use
  Company Number: US-BRISTOL-MYERS SQUIBB COMPANY-BMS-2015-085311

PATIENT
  Age: 52 Year
  Sex: Female
  Weight: 129.2 kg

DRUGS (2)
  1. IPILIMUMAB [Suspect]
     Active Substance: IPILIMUMAB
     Indication: UTERINE LEIOMYOSARCOMA
     Dosage: 1 MG/KG, QCYCLE
     Route: 042
     Dates: start: 20151015, end: 20151105
  2. NIVOLUMAB [Suspect]
     Active Substance: NIVOLUMAB
     Indication: UTERINE LEIOMYOSARCOMA
     Dosage: 3 MG/KG, QCYCLE
     Route: 042
     Dates: start: 20151015, end: 20151105

REACTIONS (1)
  - Abdominal pain [Recovered/Resolved]

NARRATIVE: CASE EVENT DATE: 20151105
